FAERS Safety Report 7922675-2 (Version None)
Quarter: 2011Q4

REPORT INFORMATION
  Report Type: 
  Country: None (occurrence: None)
  Receive Date: 20111117
  Receipt Date: 20110114
  Transmission Date: 20120403
  Serious: No
  Sender: FDA-Public Use
  Company Number: US-ALLERGAN-1100576US

PATIENT
  Age: 89 Year
  Sex: Female

DRUGS (3)
  1. LUMIGAN [Concomitant]
     Indication: GLAUCOMA
     Dosage: UNK
     Route: 047
  2. COMBIGAN [Suspect]
     Indication: GLAUCOMA
     Dosage: 1 GTT, Q12H - PATIENT ONLY USED THE PRODUCT TWICE
     Route: 047
     Dates: start: 20110106, end: 20110111
  3. REFRESH PLUS [Suspect]
     Indication: DRY EYE

REACTIONS (4)
  - MUSCLE SPASMS [None]
  - HEADACHE [None]
  - TREMOR [None]
  - EYE DISORDER [None]
